FAERS Safety Report 8240434-0 (Version None)
Quarter: 2012Q1

REPORT INFORMATION
  Report Type: 
  Country: None (occurrence: None)
  Receive Date: 20120328
  Receipt Date: 20120316
  Transmission Date: 20120608
  Serious: Yes (Death)
  Sender: FDA-Public Use
  Company Number: FR-ROCHE-1035334

PATIENT
  Sex: Male

DRUGS (3)
  1. RANIBIZUMAB [Suspect]
     Dosage: DOSE HIGHER THAN 0.05 ML
     Route: 050
     Dates: start: 20090625
  2. RANIBIZUMAB [Suspect]
     Indication: AGE-RELATED MACULAR DEGENERATION
     Dosage: DOSE HIGHER THAN 0.05 ML
     Route: 050
     Dates: start: 20090319
  3. RANIBIZUMAB [Suspect]
     Dosage: DOSE HIGHER THAN 0.05 ML
     Route: 050
     Dates: start: 20090416

REACTIONS (2)
  - DEATH [None]
  - OVERDOSE [None]
